FAERS Safety Report 5711792-3 (Version None)
Quarter: 2008Q2

REPORT INFORMATION
  Report Type: 
  Country: None (occurrence: None)
  Receive Date: 20080416
  Receipt Date: 20071125
  Transmission Date: 20081010
  Serious: Yes (Death, Disabling)
  Sender: FDA-Public Use
  Company Number: 2006MP000484

PATIENT
  Age: 43 Year
  Sex: Female
  Weight: 62 kg

DRUGS (1)
  1. GLIADEL [Suspect]
     Indication: GLIOBLASTOMA
     Dosage: 61.6 MG; X1; ICER
     Dates: start: 20060324

REACTIONS (7)
  - BRAIN OEDEMA [None]
  - CEREBRAL ISCHAEMIA [None]
  - COMA [None]
  - DECUBITUS ULCER [None]
  - INTRACRANIAL PRESSURE INCREASED [None]
  - ISCHAEMIC STROKE [None]
  - MYDRIASIS [None]
